FAERS Safety Report 4537096-2 (Version None)
Quarter: 2004Q4

REPORT INFORMATION
  Report Type: 
  Country: None (occurrence: None)
  Receive Date: 20041223
  Receipt Date: 20041215
  Transmission Date: 20050328
  Serious: Yes (Other)
  Sender: FDA-Public Use
  Company Number: DK-GLAXOSMITHKLINE-B0362606A

PATIENT
  Age: 85 Year
  Sex: Female
  Weight: 41 kg

DRUGS (1)
  1. ZYBAN [Suspect]
     Dates: start: 20041030, end: 20041104

REACTIONS (6)
  - ABDOMINAL PAIN UPPER [None]
  - FATIGUE [None]
  - FEELING ABNORMAL [None]
  - INSOMNIA [None]
  - MANIA [None]
  - TINNITUS [None]
